FAERS Safety Report 18577792 (Version 2)
Quarter: 2021Q1

REPORT INFORMATION
  Report Type: Spontaneous
  Country: US (occurrence: US)
  Receive Date: 20201204
  Receipt Date: 20210104
  Transmission Date: 20210419
  Serious: No
  Sender: FDA-Public Use
  Company Number: US-BAUSCH-BL-2020-034092

PATIENT
  Age: 89 Year
  Sex: Female
  Weight: 56.75 kg

DRUGS (1)
  1. PROLENSA [Suspect]
     Active Substance: BROMFENAC SODIUM
     Indication: ROUTINE HEALTH MAINTENANCE
     Dosage: ONCE OR TWICE A WEEK
     Route: 047
     Dates: start: 202010

REACTIONS (1)
  - Rash pruritic [Unknown]

NARRATIVE: CASE EVENT DATE: 2020
